FAERS Safety Report 5308568-8 (Version None)
Quarter: 2007Q2

REPORT INFORMATION
  Report Type: 
  Country: None (occurrence: None)
  Receive Date: 20070420
  Receipt Date: 20070404
  Transmission Date: 20071010
  Serious: Yes (Other)
  Sender: FDA-Public Use
  Company Number: 8023143

PATIENT
  Sex: Female

DRUGS (7)
  1. KEPPRA [Suspect]
     Indication: EPILEPSY
     Dosage: 1000 MG 2/D
  2. MIRON [Concomitant]
  3. KLEXANE/000889602/ [Concomitant]
  4. KOVAR [Concomitant]
  5. NEXIUM [Concomitant]
  6. CALCIUM CHLORIDE [Concomitant]
  7. MULTI-VITAMIN [Concomitant]

REACTIONS (1)
  - APLASIA PURE RED CELL [None]
